FAERS Safety Report 6865312 (Version 17)
Quarter: 2014Q2

REPORT INFORMATION
  Report Type: Spontaneous
  Country: US (occurrence: US)
  Receive Date: 20081223
  Receipt Date: 20140408
  Transmission Date: 20141212
  Serious: Yes (Death, Hospitalization, Other)
  Sender: FDA-Public Use
  Company Number: PHEH2008US11042

PATIENT
  Age: 66 Year
  Sex: Male
  Weight: 80.73 kg

DRUGS (48)
  1. ZOMETA [Suspect]
     Indication: PLASMA CELL MYELOMA
     Dosage: 4 MG, QMO
     Route: 042
     Dates: start: 2003, end: 200603
  2. AREDIA [Suspect]
     Route: 042
  3. COUMADIN ^BOOTS^ [Concomitant]
  4. THALIDOMIDE [Concomitant]
     Dosage: 3 MG, QD
  5. DECADRON [Concomitant]
     Dosage: 4 MG, QD
  6. AMOXICILLIN [Concomitant]
     Dosage: 500 MG, TID
  7. AMOXICILLIN [Concomitant]
     Dosage: 500 MG, UNK
     Dates: start: 2006
  8. REVLIMID [Concomitant]
  9. DEXAMETHASONE [Concomitant]
     Dosage: 40 MG, QW
  10. DEXAMETHASONE [Concomitant]
     Dosage: 4 MG, UNK
     Dates: start: 2003
  11. SYNTHROID [Concomitant]
     Dosage: 0.75 MG, UNK
     Dates: start: 2003
  12. NEXIUM [Concomitant]
     Dosage: 40 MG, UNK
     Dates: start: 2003
  13. WELCHOL [Concomitant]
  14. CIPRO ^MILES^ [Concomitant]
     Dosage: 500 MG, UNK
     Dates: start: 1997
  15. WARFARIN [Concomitant]
     Dosage: 1 MG, UNK
     Dates: start: 2003
  16. FLUCONAZOLE [Concomitant]
  17. BACTRIM [Concomitant]
  18. NORCO [Concomitant]
  19. OXYTOCIN [Concomitant]
  20. COMPAZINE [Concomitant]
  21. DEXAMETHASON [Concomitant]
  22. MULTI-VIT [Concomitant]
  23. FENTANYL [Concomitant]
  24. BISACODYL [Concomitant]
  25. CHEMOTHERAPEUTICS NOS [Concomitant]
     Indication: NEOPLASM MALIGNANT
  26. DURAGESIC [Concomitant]
  27. VINCRISTINE [Concomitant]
     Indication: PLASMA CELL MYELOMA
  28. ADRIAMYCIN [Concomitant]
     Indication: PLASMA CELL MYELOMA
  29. RED BLOOD CELLS [Concomitant]
  30. VITAMIN B6 [Concomitant]
  31. VITAMIN C [Concomitant]
  32. GARLIC [Concomitant]
  33. NEUTRA-PHOS [Concomitant]
  34. OXYCONTIN [Concomitant]
  35. PYRIDOXINE [Concomitant]
  36. TYLENOL [Concomitant]
  37. VITAMIN B12 [Concomitant]
  38. FOLIC ACID [Concomitant]
  39. AMBROTOSE [Concomitant]
  40. DIPHENHYDRAMINE [Concomitant]
  41. GRANISETRON [Concomitant]
  42. PAMIDRONATE DISODIUM [Concomitant]
  43. ZOLEDRONATE [Concomitant]
  44. VICODIN [Concomitant]
  45. STEROIDS NOS [Concomitant]
  46. ALEVE                              /00256202/ [Concomitant]
  47. STOOL SOFTENER [Concomitant]
  48. ANTINEOPLASTIC AGENTS [Concomitant]

REACTIONS (79)
  - Cardio-respiratory arrest [Fatal]
  - Plasma cell myeloma [Fatal]
  - Exposed bone in jaw [Unknown]
  - Tooth disorder [Unknown]
  - Toothache [Unknown]
  - Pancreatitis [Recovered/Resolved]
  - Barrett^s oesophagus [Unknown]
  - Oesophageal ulcer [Unknown]
  - Oesophageal hypomotility [Unknown]
  - Hiatus hernia [Unknown]
  - Goitre [Unknown]
  - Osteosarcoma [Unknown]
  - Second primary malignancy [Unknown]
  - Conjunctival haemorrhage [Unknown]
  - Bone lesion [Unknown]
  - Osteoarthritis [Unknown]
  - Nodule [Unknown]
  - Chest pain [Unknown]
  - Dyspnoea [Unknown]
  - Fatigue [Unknown]
  - Anxiety [Unknown]
  - Irritability [Unknown]
  - Rash pruritic [Unknown]
  - Rash maculo-papular [Unknown]
  - Blood phosphorus decreased [Unknown]
  - Back pain [Unknown]
  - Peripheral swelling [Unknown]
  - Erythema nodosum [Unknown]
  - Blood disorder [Unknown]
  - Anaemia [Unknown]
  - Neuropathy peripheral [Unknown]
  - Hypercalcaemia [Unknown]
  - Atelectasis [Unknown]
  - Osteopenia [Unknown]
  - Intervertebral disc degeneration [Unknown]
  - Intervertebral disc protrusion [Unknown]
  - Asthenia [Unknown]
  - Altered state of consciousness [Unknown]
  - Weight decreased [Unknown]
  - Mental status changes [Unknown]
  - Mobility decreased [Unknown]
  - Dehydration [Unknown]
  - Scapula fracture [Unknown]
  - Gait disturbance [Unknown]
  - Sinus bradycardia [Unknown]
  - Insomnia [Unknown]
  - Tooth fracture [Unknown]
  - Dental caries [Unknown]
  - Headache [Unknown]
  - Osteomyelitis [Unknown]
  - Sleep apnoea syndrome [Unknown]
  - Mass [Unknown]
  - Rib fracture [Unknown]
  - Scoliosis [Unknown]
  - Thyroid neoplasm [Unknown]
  - Vascular calcification [Unknown]
  - Joint effusion [Unknown]
  - Syncope [Unknown]
  - Hypotension [Unknown]
  - Calcinosis [Unknown]
  - Spinal osteoarthritis [Unknown]
  - Corneal bleeding [Unknown]
  - Dizziness [Unknown]
  - Upper extremity mass [Unknown]
  - Gingival bleeding [Unknown]
  - Pulmonary fibrosis [Unknown]
  - Osteolysis [Unknown]
  - Soft tissue mass [Unknown]
  - Renal failure [Unknown]
  - Musculoskeletal pain [Unknown]
  - Constipation [Unknown]
  - Musculoskeletal chest pain [Unknown]
  - Skin discolouration [Unknown]
  - Skin burning sensation [Unknown]
  - Myalgia [Unknown]
  - Skin oedema [Unknown]
  - Gingival pain [Unknown]
  - Decreased appetite [Unknown]
  - Diarrhoea [Unknown]
